FAERS Safety Report 4646467-5 (Version None)
Quarter: 2005Q2

REPORT INFORMATION
  Report Type: 
  Country: None (occurrence: None)
  Receive Date: 20050427
  Receipt Date: 20040402
  Transmission Date: 20051028
  Serious: No
  Sender: FDA-Public Use
  Company Number: US-GLAXOSMITHKLINE-A0506099A

PATIENT
  Age: 43 Year
  Sex: Female

DRUGS (5)
  1. FLOVENT [Suspect]
     Indication: ASTHMA
     Dosage: 440MCG TWICE PER DAY
     Route: 055
     Dates: end: 20020901
  2. FLONASE [Suspect]
     Route: 045
  3. VENTOLIN HFA [Suspect]
     Indication: ASTHMA
     Dosage: 2PUFF AS REQUIRED
     Route: 055
     Dates: start: 19810101
  4. BECONASE [Suspect]
     Dosage: 4SPR TWICE PER DAY
     Route: 045
     Dates: start: 20000101, end: 20020901
  5. VANCENASE [Concomitant]

REACTIONS (4)
  - ADRENAL DISORDER [None]
  - BLOOD CORTISOL DECREASED [None]
  - DRUG INEFFECTIVE [None]
  - NERVOUSNESS [None]
